FAERS Safety Report 25126494 (Version 1)
Quarter: 2025Q1

REPORT INFORMATION
  Report Type: Report from Study
  Country: DE (occurrence: None)
  Receive Date: 20250327
  Receipt Date: 20250327
  Transmission Date: 20250409
  Serious: Yes (Other)
  Sender: HARMAN FINOCHEM
  Company Number: DE-Harman-000092

PATIENT
  Age: 9 Year
  Sex: Female

DRUGS (1)
  1. THEOPHYLLINE [Suspect]
     Active Substance: THEOPHYLLINE
     Indication: ADCY5-related dyskinesia
     Dosage: SLOW-RELEASE FORMULATION

REACTIONS (2)
  - Dystonia [Unknown]
  - Off label use [Unknown]
